FAERS Safety Report 8814974 (Version 1)
Quarter: 2012Q4

REPORT INFORMATION
  Report Type: 
  Country: PL (occurrence: PL)
  Receive Date: 20120928
  Receipt Date: 20120928
  Transmission Date: 20130627
  Serious: Yes (Hospitalization)
  Sender: FDA-Public Use
  Company Number: PHHY2012PL082375

PATIENT
  Sex: Male
  Weight: 100 kg

DRUGS (11)
  1. MYFORTIC [Suspect]
     Indication: RENAL TRANSPLANT
     Dosage: 720 mg, BID
     Dates: end: 20081215
  2. PROGRAF [Concomitant]
     Indication: RENAL TRANSPLANT
     Dosage: 9 mg, UNK
  3. PROGRAF [Concomitant]
     Dosage: UNK UKN, UNK
  4. GS [Concomitant]
     Indication: RENAL TRANSPLANT
     Dosage: 9 mg, UNK
  5. GS [Concomitant]
     Dosage: UNK UKN, UNK
  6. FK 506 [Concomitant]
     Indication: RENAL TRANSPLANT
     Dosage: UNK UKN, UNK
  7. METHYLPREDNISOLONE [Concomitant]
     Indication: RENAL TRANSPLANT
     Dosage: 500 mg, TID
     Route: 042
  8. METHYLPREDNISOLONE [Concomitant]
     Dosage: 250 mg, UNK
     Route: 042
  9. METHYLPREDNISOLONE [Concomitant]
     Dosage: 125 mg, TID
     Route: 042
  10. METHYLPREDNISOLONE [Concomitant]
     Dosage: 360 mg, UNK
  11. METHYLPREDNISOLONE [Concomitant]
     Dosage: 500 mg, TID

REACTIONS (9)
  - Clostridium difficile colitis [Unknown]
  - Kidney transplant rejection [Unknown]
  - Complications of transplanted kidney [Unknown]
  - Chronic allograft nephropathy [Unknown]
  - Renal lymphocele [Unknown]
  - Nephropathy toxic [Unknown]
  - Azotaemia [Unknown]
  - Kidney fibrosis [Unknown]
  - Renal tubular atrophy [Unknown]
